FAERS Safety Report 11045294 (Version 4)
Quarter: 2015Q2

REPORT INFORMATION
  Report Type: Spontaneous
  Country: US (occurrence: US)
  Receive Date: 20150417
  Receipt Date: 20150520
  Transmission Date: 20150821
  Serious: Yes (Hospitalization, Other)
  Sender: FDA-Public Use
  Company Number: US-INCYTE CORPORATION-2015IN001150

PATIENT
  Age: 79 Year
  Sex: Male
  Weight: 121.54 kg

DRUGS (46)
  1. JAKAFI [Suspect]
     Active Substance: RUXOLITINIB
     Indication: MYELOFIBROSIS
     Dosage: 5 MG, BID
     Route: 048
     Dates: start: 20130901
  2. FOLIC ACID. [Concomitant]
     Active Substance: FOLIC ACID
     Dosage: 800 MCG, QD
  3. KELP                               /01214901/ [Concomitant]
     Dosage: 225 MCG, QD
  4. SILICA [Concomitant]
     Active Substance: SILICON DIOXIDE
     Dosage: 500 MG, QD
  5. QUERCETIN [Concomitant]
     Active Substance: QUERCETIN
  6. JAKAFI [Suspect]
     Active Substance: RUXOLITINIB
     Dosage: 20 MG, BID
     Route: 048
     Dates: start: 20140320
  7. PREDNISONE. [Concomitant]
     Active Substance: PREDNISONE
     Dosage: 10 MG, QD
     Dates: start: 20150212
  8. ALDACTONE [Concomitant]
     Active Substance: SPIRONOLACTONE
     Dosage: UNKNOWN
  9. MULTIVITAMIN                       /00097801/ [Concomitant]
     Active Substance: VITAMINS
     Dosage: 1 TALBET DAILY
  10. VITAMIN B COMPLEX [Concomitant]
     Active Substance: CYANOCOBALAMIN\DEXPANTHENOL\NIACINAMIDE\PYRIDOXINE HYDROCHLORIDE\RIBOFLAVIN 5^-PHOSPHATE SODIUM\THIAMINE HYDROCHLORIDE\VITAMIN B COMPLEX
     Dosage: 100-125 MG DAILY
  11. COENZYME Q10 [Concomitant]
     Active Substance: UBIDECARENONE
  12. JAKAFI [Suspect]
     Active Substance: RUXOLITINIB
     Dosage: 5 MG, BID
     Route: 048
     Dates: start: 201410
  13. PREDNISONE. [Concomitant]
     Active Substance: PREDNISONE
     Dosage: 20 MG, QD
     Dates: start: 20150130
  14. FLUZONE                            /00780601/ [Concomitant]
     Dosage: UNK
     Dates: start: 2014, end: 2015
  15. ZINC [Concomitant]
     Active Substance: ZINC\ZINC CHLORIDE
     Dosage: 50 MG, QD
  16. CARNITINE [Concomitant]
     Active Substance: CARNITINE
  17. DOXYCYCLINE. [Concomitant]
     Active Substance: DOXYCYCLINE
     Dosage: 100 MG, BID
  18. LASIX [Concomitant]
     Active Substance: FUROSEMIDE
     Dosage: 80 UNK, QD
  19. ALLOPURINOL. [Concomitant]
     Active Substance: ALLOPURINOL
     Dosage: 300 MG IN THE EVENING
  20. FLUZONE                            /00780601/ [Concomitant]
     Dosage: UNK
     Dates: start: 20141016
  21. MUCINEX [Concomitant]
     Active Substance: GUAIFENESIN
     Dosage: AS NEEDED
  22. OMEGA 3 FISH OIL                   /01334101/ [Concomitant]
     Dosage: 100 MG, QD
  23. PROCRIT [Concomitant]
     Active Substance: ERYTHROPOIETIN
     Dosage: 20000 UNITS WEEKLY
     Dates: start: 201301, end: 20150115
  24. CURCUMIN [Concomitant]
     Active Substance: CURCUMIN
  25. THALOMID [Suspect]
     Active Substance: THALIDOMIDE
     Dosage: 50 MG, QD
     Dates: start: 20150130, end: 20150330
  26. ALBUTEROL                          /00139501/ [Concomitant]
     Active Substance: ALBUTEROL
     Dosage: 2 PUFFS AS NEEDED
  27. LUMIGAN [Concomitant]
     Active Substance: BIMATOPROST
     Dosage: 1 DROP EVERY DAY BEFORE SLEEP (1 DROP EACH EYE)
  28. METHYLSULFONYLMETHANE [Concomitant]
     Active Substance: DIMETHYL SULFONE
     Dosage: 1000 MG, QD
  29. NEURONTIN [Concomitant]
     Active Substance: GABAPENTIN
     Dosage: 300 MG, BID
  30. TURMERIC                           /01079602/ [Concomitant]
     Dosage: 300 MG, QD
  31. VITAMIN D                          /00107901/ [Concomitant]
     Active Substance: ERGOCALCIFEROL
     Dosage: 5000 IU, UNK
  32. LASIX [Concomitant]
     Active Substance: FUROSEMIDE
     Dosage: 60 MG, UNK
     Route: 042
     Dates: start: 20150320
  33. ASPIRIN. [Concomitant]
     Active Substance: ASPIRIN
     Dosage: 325 NG, QD
     Dates: end: 20150330
  34. OMEPRAZOLE. [Concomitant]
     Active Substance: OMEPRAZOLE
     Dosage: 20 MG IN THE MORNING
  35. PROBIOTIC                          /06395501/ [Concomitant]
     Dosage: 13 BILLION DAILY
  36. SILVADENE [Concomitant]
     Active Substance: SILVER SULFADIAZINE
     Dosage: 45 UNK, UNK
  37. XANAX [Concomitant]
     Active Substance: ALPRAZOLAM
     Dosage: 1 TABLET EVERY DAY BEFORE SLEEP
  38. CRANBERRY                          /01512301/ [Concomitant]
  39. IODINE [Concomitant]
     Active Substance: IODINE
  40. HAWTHORN                           /01349301/ [Concomitant]
     Active Substance: HAWTHORN LEAF WITH FLOWER
     Dosage: 565 MG, QD
  41. LASIX [Concomitant]
     Active Substance: FUROSEMIDE
     Dosage: 60 MG, QD
  42. ALPHA LIPOIC ACID [Concomitant]
     Active Substance: .ALPHA.-LIPOIC ACID
     Dosage: 100 MG, QD
  43. MAGNESIUM [Concomitant]
     Active Substance: MAGNESIUM
  44. METOPROLOL TARTRATE. [Concomitant]
     Active Substance: METOPROLOL TARTRATE
     Dosage: 150 MG, QD
  45. LASIX [Concomitant]
     Active Substance: FUROSEMIDE
     Dosage: 120 MG, QD
  46. VITAMIN C [Concomitant]
     Active Substance: ASCORBIC ACID
     Dosage: 125 MG, QD

REACTIONS (27)
  - Skin lesion [Recovered/Resolved]
  - Fatigue [Recovering/Resolving]
  - Rash [Unknown]
  - Cellulitis [Recovered/Resolved]
  - Cough [Recovered/Resolved]
  - Upper respiratory tract infection [Recovered/Resolved]
  - Asthenia [Not Recovered/Not Resolved]
  - Skin abrasion [Unknown]
  - Pulmonary hypertension [Recovered/Resolved]
  - Mood altered [Not Recovered/Not Resolved]
  - Lipoma [Recovered/Resolved]
  - Hyperkalaemia [Recovered/Resolved]
  - Wheezing [Recovered/Resolved]
  - Waist circumference increased [Recovering/Resolving]
  - Splenomegaly [Unknown]
  - Urinary incontinence [Recovering/Resolving]
  - Musculoskeletal pain [Recovering/Resolving]
  - Cardiac failure congestive [Recovered/Resolved]
  - Dyspnoea [Recovered/Resolved]
  - Visual impairment [Unknown]
  - Ecchymosis [Unknown]
  - Iron overload [Unknown]
  - Anaemia [Not Recovered/Not Resolved]
  - Nasopharyngitis [Recovered/Resolved]
  - Limb discomfort [Recovering/Resolving]
  - Decreased appetite [Unknown]
  - Purpura [Unknown]

NARRATIVE: CASE EVENT DATE: 20131120
